FAERS Safety Report 5902655-9 (Version None)
Quarter: 2008Q3

REPORT INFORMATION
  Report Type: 
  Country: None (occurrence: None)
  Receive Date: 20080930
  Receipt Date: 20080918
  Transmission Date: 20090109
  Serious: Yes (Life-Threatening, Hospitalization)
  Sender: FDA-Public Use
  Company Number: GB-RANBAXY-2008RR-18144

PATIENT
  Age: 50 Year
  Sex: Male

DRUGS (5)
  1. IBUPROFEN TABLETS [Suspect]
     Indication: HEADACHE
     Dosage: 400 MG, TID
     Dates: start: 20060901, end: 20080909
  2. AMLODIPINE [Concomitant]
     Dosage: 5 MG, QD
  3. BENDROFLUMETHIAZIDE [Concomitant]
     Dosage: 2.5 MG, QD
  4. ACETAMINOPHEN [Concomitant]
     Dosage: UNK
  5. PHENYTOIN [Concomitant]
     Dosage: 300 MG, QD

REACTIONS (3)
  - DUODENAL ULCER [None]
  - HAEMOGLOBIN DECREASED [None]
  - MELAENA [None]
